FAERS Safety Report 4958408-1 (Version None)
Quarter: 2006Q1

REPORT INFORMATION
  Report Type: 
  Country: None (occurrence: None)
  Receive Date: 20060329
  Receipt Date: 20060329
  Transmission Date: 20060701
  Serious: Yes (Other)
  Sender: FDA-Public Use
  Company Number: None

PATIENT
  Age: 42 Year
  Sex: Male
  Weight: 124.2856 kg

DRUGS (16)
  1. OXYCODONE ER 80 MG [Suspect]
     Indication: INTERVERTEBRAL DISC DEGENERATION
     Dosage: ONCE PO TID
     Route: 048
     Dates: start: 20040501
  2. OXYCODONE ER 80 MG [Suspect]
     Indication: NECK PAIN
     Dosage: ONCE PO TID
     Route: 048
     Dates: start: 20040501
  3. OXYCODONE ER 80 MG [Suspect]
     Indication: INTERVERTEBRAL DISC DEGENERATION
     Dosage: ONCE PO TID
     Route: 048
     Dates: start: 20040601
  4. OXYCODONE ER 80 MG [Suspect]
     Indication: NECK PAIN
     Dosage: ONCE PO TID
     Route: 048
     Dates: start: 20040601
  5. ZYPREXA [Concomitant]
  6. TERAZEPAM [Concomitant]
  7. NIASPAN [Concomitant]
  8. ZOLOFT [Concomitant]
  9. METHADONE HCL [Concomitant]
  10. PERCOCET [Concomitant]
  11. ACCUPRIL [Concomitant]
  12. METFORMIN [Concomitant]
  13. PROTONIX [Concomitant]
  14. CLONIDINE [Concomitant]
  15. METOPROLOL [Concomitant]
  16. TIZANIDINE HCL [Concomitant]

REACTIONS (4)
  - CONDITION AGGRAVATED [None]
  - DRUG EFFECT DECREASED [None]
  - PAIN [None]
  - THERAPEUTIC RESPONSE UNEXPECTED WITH DRUG SUBSTITUTION [None]
